FAERS Safety Report 21272160 (Version 1)
Quarter: 2022Q3

REPORT INFORMATION
  Report Type: Spontaneous
  Country: US (occurrence: US)
  Receive Date: 20220830
  Receipt Date: 20220830
  Transmission Date: 20221027
  Serious: No
  Sender: FDA-Public Use
  Company Number: US-BRAINTREE LABORATORIES, INC.-2022BTE00621

PATIENT
  Age: 37 Year
  Sex: Female

DRUGS (4)
  1. SUTAB [Suspect]
     Active Substance: MAGNESIUM SULFATE\POTASSIUM CHLORIDE\SODIUM SULFATE
     Indication: Colonoscopy
     Dosage: 2 X 12 TABLETS, 1X
     Route: 048
     Dates: start: 20220718, end: 20220719
  2. VITAMINS [Concomitant]
     Active Substance: VITAMINS
  3. ZYRTEC [Concomitant]
     Active Substance: CETIRIZINE HYDROCHLORIDE
  4. BALSALAZIDE [Concomitant]
     Active Substance: BALSALAZIDE

REACTIONS (7)
  - Paraesthesia [Recovered/Resolved]
  - Muscular weakness [Recovered/Resolved]
  - Feeling cold [Recovered/Resolved]
  - Myalgia [Recovered/Resolved]
  - Sensory disturbance [Recovered/Resolved]
  - Grip strength decreased [Recovered/Resolved]
  - Vomiting [Recovered/Resolved]

NARRATIVE: CASE EVENT DATE: 20220701
